FAERS Safety Report 12628260 (Version 1)
Quarter: 2016Q3

REPORT INFORMATION
  Report Type: Spontaneous
  Country: US (occurrence: US)
  Receive Date: 20160808
  Receipt Date: 20160808
  Transmission Date: 20161109
  Serious: No
  Sender: FDA-Public Use
  Company Number: US-BEH-2016072055

PATIENT
  Sex: Male
  Weight: 62.59 kg

DRUGS (22)
  1. HIZENTRA [Suspect]
     Active Substance: HUMAN IMMUNOGLOBULIN G
     Indication: SELECTIVE IGG SUBCLASS DEFICIENCY
     Dosage: UNK
     Route: 058
  2. ACETAMINOPHEN. [Concomitant]
     Active Substance: ACETAMINOPHEN
  3. TIOTROPIUM BROMIDE [Concomitant]
     Active Substance: TIOTROPIUM BROMIDE
  4. LISINOPRIL. [Concomitant]
     Active Substance: LISINOPRIL
  5. GABAPENTIN. [Concomitant]
     Active Substance: GABAPENTIN
  6. DIPHENHYDRAMINE. [Concomitant]
     Active Substance: DIPHENHYDRAMINE
  7. DALIRESP [Concomitant]
     Active Substance: ROFLUMILAST
  8. OXYCODONE [Concomitant]
     Active Substance: OXYCODONE
  9. TRAMADOL. [Concomitant]
     Active Substance: TRAMADOL
  10. BUPROPION. [Concomitant]
     Active Substance: BUPROPION
  11. HIZENTRA [Suspect]
     Active Substance: HUMAN IMMUNOGLOBULIN G
     Indication: IMMUNODEFICIENCY COMMON VARIABLE
     Dosage: UNK
     Route: 058
  12. VENTOLIN [Concomitant]
     Active Substance: ALBUTEROL SULFATE
  13. ZYRTEC [Concomitant]
     Active Substance: CETIRIZINE HYDROCHLORIDE
  14. ASPIRIN. [Concomitant]
     Active Substance: ASPIRIN
  15. FUROSEMIDE. [Concomitant]
     Active Substance: FUROSEMIDE
  16. VITAMIN D3 [Concomitant]
     Active Substance: CHOLECALCIFEROL
  17. HIZENTRA [Suspect]
     Active Substance: HUMAN IMMUNOGLOBULIN G
     Dosage: 9 G, QW
     Route: 058
     Dates: start: 20160105
  18. ATORVASTATIN [Concomitant]
     Active Substance: ATORVASTATIN
  19. FERROUS SULFATE. [Concomitant]
     Active Substance: FERROUS SULFATE
  20. EPIPEN [Concomitant]
     Active Substance: EPINEPHRINE
  21. NASONEX [Concomitant]
     Active Substance: MOMETASONE FUROATE
  22. NEXIUM [Concomitant]
     Active Substance: ESOMEPRAZOLE MAGNESIUM

REACTIONS (3)
  - Upper respiratory tract infection [Unknown]
  - Infusion site nodule [Unknown]
  - Contusion [Unknown]
